FAERS Safety Report 19382022 (Version 2)
Quarter: 2021Q2

REPORT INFORMATION
  Report Type: Spontaneous
  Country: DE (occurrence: DE)
  Receive Date: 20210607
  Receipt Date: 20210616
  Transmission Date: 20210717
  Serious: Yes (Hospitalization, Other)
  Sender: FDA-Public Use
  Company Number: DE-AUROBINDO-AUR-APL-2021-022845

PATIENT
  Age: 42 Year
  Sex: Female
  Weight: 64 kg

DRUGS (1)
  1. BISOPROLOL [Suspect]
     Active Substance: BISOPROLOL
     Indication: HYPERTENSIVE EMERGENCY
     Dosage: 2.5 MILLIGRAM, ONCE A DAY
     Route: 065

REACTIONS (3)
  - Hypoglycaemia [Not Recovered/Not Resolved]
  - Fatigue [Unknown]
  - Loss of consciousness [Not Recovered/Not Resolved]
